FAERS Safety Report 16103073 (Version 4)
Quarter: 2022Q4

REPORT INFORMATION
  Report Type: Spontaneous
  Country: ES (occurrence: ES)
  Receive Date: 20190322
  Receipt Date: 20221217
  Transmission Date: 20230113
  Serious: Yes (Hospitalization, Other)
  Sender: FDA-Public Use
  Company Number: None

PATIENT
  Age: 28 Year
  Sex: Male

DRUGS (18)
  1. BENDAMUSTINE [Suspect]
     Active Substance: BENDAMUSTINE
     Indication: Non-Hodgkin^s lymphoma stage II
     Dosage: UNK, DAYS 1, 2
     Route: 065
     Dates: start: 20180226
  2. BENDAMUSTINE [Suspect]
     Active Substance: BENDAMUSTINE
     Dosage: 150 MILLIGRAM
     Route: 065
  3. DOXORUBICIN [Suspect]
     Active Substance: DOXORUBICIN
     Indication: Non-Hodgkin^s lymphoma stage II
     Dosage: UNK CYCLICAL, 1ST LINE CHEMOTHERAPY, CHOP (?5)
     Route: 065
     Dates: start: 201706
  4. GEMCITABINE [Suspect]
     Active Substance: GEMCITABINE
     Indication: Non-Hodgkin^s lymphoma stage II
     Dosage: UNK, THIRD-LINE CHEMOTHERPY
     Route: 065
  5. OXALIPLATIN [Suspect]
     Active Substance: OXALIPLATIN
     Indication: Non-Hodgkin^s lymphoma stage II
     Dosage: UNK THIRD-LINE CHEMOTEHRAPY
     Route: 065
  6. CISPLATIN [Suspect]
     Active Substance: CISPLATIN
     Indication: Non-Hodgkin^s lymphoma stage II
     Dosage: UNK, SECOND-LINE CHEMOTHERAPY
     Route: 065
     Dates: start: 2017, end: 2017
  7. CYCLOPHOSPHAMIDE [Suspect]
     Active Substance: CYCLOPHOSPHAMIDE
     Indication: Non-Hodgkin^s lymphoma stage II
     Dosage: UNK1ST LINE CHEMOTHERAPY
     Route: 065
     Dates: start: 201706, end: 2017
  8. CYTARABINE [Suspect]
     Active Substance: CYTARABINE
     Indication: Non-Hodgkin^s lymphoma stage II
     Dosage: UNK, SECOND-LINE CHEMOTHERAPY
     Route: 065
  9. ETOPOSIDE [Suspect]
     Active Substance: ETOPOSIDE
     Indication: Non-Hodgkin^s lymphoma stage II
     Dosage: UNK, SECOND-LINE CHEMOTHERAPY
     Route: 065
  10. GENOXAL [Suspect]
     Active Substance: CYCLOPHOSPHAMIDE
     Indication: Non-Hodgkin^s lymphoma stage II
     Dosage: UNK, CYCLICAL, 1ST LINE CHEMOTHERAPY, CHOP (?5)
     Route: 065
     Dates: start: 201706, end: 2017
  11. GENOXAL [Suspect]
     Active Substance: CYCLOPHOSPHAMIDE
     Indication: Non-Hodgkin^s lymphoma
  12. METHYLPREDNISOLONE [Suspect]
     Active Substance: METHYLPREDNISOLONE
     Indication: Non-Hodgkin^s lymphoma stage II
     Dosage: UNK, SECOND-LINE CHEMOTHERAPY
     Route: 065
     Dates: start: 2017, end: 2017
  13. PREDNISONE [Suspect]
     Active Substance: PREDNISONE
     Indication: Non-Hodgkin^s lymphoma stage II
     Dosage: UNK, CYCLICAL,FIRST LINE CHEMOTHERAPY, (CHOP (?5)
     Route: 065
     Dates: start: 201706, end: 2017
  14. PREDNISONE [Suspect]
     Active Substance: PREDNISONE
     Indication: Non-Hodgkin^s lymphoma
  15. VINCRISTINE SULFATE [Suspect]
     Active Substance: VINCRISTINE SULFATE
     Indication: Non-Hodgkin^s lymphoma stage II
     Dosage: UNK UNK, CYCLICAL,FIRST LINE CHEMOTHERAPY, (CHOP (?5)
     Route: 065
     Dates: start: 201706, end: 2017
  16. BRENTUXIMAB VEDOTIN [Concomitant]
     Active Substance: BRENTUXIMAB VEDOTIN
     Indication: Non-Hodgkin^s lymphoma stage II
     Dosage: UNK
     Route: 065
     Dates: start: 20180226
  17. BRENTUXIMAB VEDOTIN [Concomitant]
     Active Substance: BRENTUXIMAB VEDOTIN
     Dosage: 150 MILLIGRAM, INFUSION
     Route: 065
     Dates: start: 20180226
  18. MONTELUKAST [Concomitant]
     Active Substance: MONTELUKAST SODIUM
     Indication: Premedication
     Dosage: UNK
     Route: 065

REACTIONS (11)
  - Rash maculo-papular [Recovered/Resolved]
  - Angioedema [Recovered/Resolved]
  - Pruritus [Recovered/Resolved]
  - Type IV hypersensitivity reaction [Recovered/Resolved]
  - Pyrexia [Recovered/Resolved]
  - Dyspnoea [Recovered/Resolved]
  - Rash [Recovered/Resolved]
  - Temperature regulation disorder [Recovered/Resolved]
  - Non-Hodgkin^s lymphoma [Unknown]
  - Drug ineffective [Unknown]
  - Therapy non-responder [Unknown]

NARRATIVE: CASE EVENT DATE: 20170101
